FAERS Safety Report 7345334-6 (Version None)
Quarter: 2011Q1

REPORT INFORMATION
  Report Type: 
  Country: None (occurrence: None)
  Receive Date: 20110310
  Receipt Date: 20110307
  Transmission Date: 20110831
  Serious: Yes (Hospitalization)
  Sender: FDA-Public Use
  Company Number: KR-ROXANE LABORATORIES, INC.-2011-RO-00274RO

PATIENT
  Age: 60 Year
  Sex: Female

DRUGS (3)
  1. MIRTAZAPINE [Suspect]
     Dosage: 405 MG
     Route: 048
  2. ALPRAZOLAM INTENSOL [ORAL SOLUTION (CONCENTRATE)] 1 MG/ML [Suspect]
     Dosage: 20.25 MG
     Route: 048
  3. BUSPIRONE [Suspect]
     Dosage: 405 MG
     Route: 048

REACTIONS (4)
  - ELECTROCARDIOGRAM QT PROLONGED [None]
  - ATELECTASIS [None]
  - SEDATION [None]
  - HYPOXIA [None]
